FAERS Safety Report 17091050 (Version 1)
Quarter: 2019Q4

REPORT INFORMATION
  Report Type: Report from Study
  Country: BR (occurrence: BR)
  Receive Date: 20191129
  Receipt Date: 20191129
  Transmission Date: 20200122
  Serious: Yes (Other)
  Sender: FDA-Public Use
  Company Number: BR-ROCHE-2484906

PATIENT
  Age: 21 Year
  Sex: Female

DRUGS (2)
  1. XOLAIR [Suspect]
     Active Substance: OMALIZUMAB
     Indication: URTICARIA CHRONIC
     Dosage: 1 DF, QMO
     Route: 065
     Dates: start: 20191021
  2. ALEKTOS [Concomitant]
     Active Substance: BILASTINE
     Indication: URTICARIA CHRONIC
     Dosage: 1 DF (THREE OR FOUR TIMES A DAY)
     Route: 048

REACTIONS (6)
  - Vomiting [Recovered/Resolved]
  - Chills [Not Recovered/Not Resolved]
  - Malaise [Recovered/Resolved]
  - Nasal congestion [Not Recovered/Not Resolved]
  - Urticaria [Recovering/Resolving]
  - Pyrexia [Not Recovered/Not Resolved]

NARRATIVE: CASE EVENT DATE: 20191023
